FAERS Safety Report 9660301 (Version 1)
Quarter: 2013Q4

REPORT INFORMATION
  Report Type: Spontaneous
  Country: US (occurrence: US)
  Receive Date: 20131031
  Receipt Date: 20131031
  Transmission Date: 20140711
  Serious: Yes (Hospitalization)
  Sender: FDA-Public Use
  Company Number: US-NAPPMUNDI-USA-2011-0071146

PATIENT
  Age: 79 Year
  Sex: Female

DRUGS (2)
  1. OXYCONTIN TABLETS [Suspect]
     Indication: PAIN
     Dosage: UNK, SINGLE
     Route: 048
  2. KADIAN [Suspect]
     Indication: PAIN
     Dosage: 50 MG, TID

REACTIONS (2)
  - Respiratory depression [Recovered/Resolved]
  - Expired drug administered [Unknown]
